FAERS Safety Report 5691904-0 (Version None)
Quarter: 2008Q1

REPORT INFORMATION
  Report Type: 
  Country: None (occurrence: None)
  Receive Date: 20080331
  Receipt Date: 20080318
  Transmission Date: 20080703
  Serious: Yes (Other)
  Sender: FDA-Public Use
  Company Number: B0512424A

PATIENT
  Age: 70 Year
  Sex: Male

DRUGS (1)
  1. ALBENDAZOLE (FORMULATION UNKNOWN)(GENERIC)(ALBENDAZOLE) [Suspect]
     Indication: ECHINOCOCCIASIS
     Dates: start: 20010101

REACTIONS (1)
  - HEPATOTOXICITY [None]
